FAERS Safety Report 7184416-9 (Version None)
Quarter: 2010Q4

REPORT INFORMATION
  Report Type: 
  Country: None (occurrence: None)
  Receive Date: 20101222
  Receipt Date: 20100721
  Transmission Date: 20110411
  Serious: No
  Sender: FDA-Public Use
  Company Number: US-PFIZER INC-2010091315

PATIENT
  Sex: Female

DRUGS (3)
  1. DIFLUCAN [Suspect]
     Indication: FUNGAL INFECTION
     Dosage: 150 MG, UNK
     Route: 065
     Dates: start: 20100601
  2. MONISTAT [Suspect]
     Indication: FUNGAL INFECTION
     Dosage: UNK
     Route: 067
     Dates: start: 20100601
  3. UROXATRAL [Suspect]
     Indication: MICTURITION DISORDER
     Dosage: 10 MG, DAILY
     Route: 048
     Dates: start: 20100601, end: 20100601

REACTIONS (3)
  - HEART RATE INCREASED [None]
  - OFF LABEL USE [None]
  - VULVOVAGINAL MYCOTIC INFECTION [None]
